FAERS Safety Report 13875991 (Version 2)
Quarter: 2017Q4

REPORT INFORMATION
  Report Type: Spontaneous
  Country: IN (occurrence: US)
  Receive Date: 20170817
  Receipt Date: 20171220
  Transmission Date: 20180320
  Serious: No
  Sender: FDA-Public Use
  Company Number: IN-PFIZER INC-2017355476

PATIENT
  Sex: Female

DRUGS (3)
  1. VALSARTAN HCTZ [Concomitant]
     Active Substance: HYDROCHLOROTHIAZIDE\VALSARTAN
     Dosage: UNK
  2. DILTIAZEM HCL [Suspect]
     Active Substance: DILTIAZEM HYDROCHLORIDE
     Dosage: 180 MG, ER
     Dates: start: 20161017
  3. GLIMEPIRIDE. [Concomitant]
     Active Substance: GLIMEPIRIDE
     Dosage: UNK

REACTIONS (2)
  - Abdominal pain upper [Unknown]
  - Nausea [Unknown]
